FAERS Safety Report 25519177 (Version 1)
Quarter: 2025Q3

REPORT INFORMATION
  Report Type: Spontaneous
  Country: CA (occurrence: CA)
  Receive Date: 20250704
  Receipt Date: 20250704
  Transmission Date: 20251020
  Serious: Yes (Other)
  Sender: TEVA
  Company Number: CA-TEVA-VS-3346199

PATIENT
  Age: 71 Year
  Sex: Male
  Weight: 124 kg

DRUGS (1)
  1. IMATINIB [Suspect]
     Active Substance: IMATINIB
     Indication: Product used for unknown indication
     Route: 048

REACTIONS (5)
  - Erectile dysfunction [Recovered/Resolved]
  - Product substitution issue [Recovered/Resolved]
  - Breast tenderness [Recovered/Resolved]
  - Nipple pain [Recovered/Resolved]
  - Sexual dysfunction [Recovered/Resolved]
